FAERS Safety Report 11354583 (Version 1)
Quarter: 2015Q3

REPORT INFORMATION
  Report Type: Spontaneous
  Country: US (occurrence: US)
  Receive Date: 20150807
  Receipt Date: 20150807
  Transmission Date: 20151125
  Serious: No
  Sender: FDA-Public Use
  Company Number: US-JNJFOC-20150306269

PATIENT
  Age: 74 Year
  Sex: Female
  Weight: 74.84 kg

DRUGS (10)
  1. MENS ROGAINE EXTRA STRENGTH [Suspect]
     Active Substance: MINOXIDIL
     Route: 061
  2. TOCOPHEROL [Concomitant]
     Active Substance: TOCOPHEROL
     Indication: EYE DEGENERATIVE DISORDER
     Dosage: 20 YEARS
     Route: 065
  3. ZINC [Concomitant]
     Active Substance: ZINC\ZINC CHLORIDE
     Indication: EYE DEGENERATIVE DISORDER
     Dosage: YEARS
     Route: 065
  4. MENS ROGAINE EXTRA STRENGTH [Suspect]
     Active Substance: MINOXIDIL
     Indication: ALOPECIA
     Dosage: DROPPER AMOUNT
     Route: 061
     Dates: start: 20150212
  5. LUTEIN [Concomitant]
     Active Substance: LUTEIN
     Indication: EYE DEGENERATIVE DISORDER
     Dosage: YEARS
     Route: 065
  6. ALL OTHER THERAPEUTIC PRODUCTS [Concomitant]
     Active Substance: UNSPECIFIED INGREDIENT
     Indication: EYE DEGENERATIVE DISORDER
     Dosage: YEARS
     Route: 065
  7. VITAMIN C [Concomitant]
     Active Substance: ASCORBIC ACID
     Indication: IMMUNE SYSTEM DISORDER
     Dosage: YEARS
     Route: 065
  8. VITAMIN D3 [Concomitant]
     Active Substance: CHOLECALCIFEROL
     Indication: NUTRITIONAL SUPPLEMENTATION
     Dosage: YEARS
     Route: 065
  9. CALCIUM [Concomitant]
     Active Substance: CALCIUM
     Indication: NUTRITIONAL SUPPLEMENTATION
     Dosage: YEARS
     Route: 065
  10. FISH OIL [Concomitant]
     Active Substance: FISH OIL
     Indication: EYE DEGENERATIVE DISORDER
     Dosage: YEARS
     Route: 065

REACTIONS (5)
  - Dry skin [Unknown]
  - Hair disorder [Not Recovered/Not Resolved]
  - Dandruff [Unknown]
  - Hair colour changes [Not Recovered/Not Resolved]
  - Wrong patient received medication [Unknown]

NARRATIVE: CASE EVENT DATE: 20150212
